FAERS Safety Report 5213833-9 (Version None)
Quarter: 2007Q1

REPORT INFORMATION
  Report Type: 
  Country: None (occurrence: None)
  Receive Date: 20070119
  Receipt Date: 20070110
  Transmission Date: 20070707
  Serious: Yes (Death, Hospitalization, Other)
  Sender: FDA-Public Use
  Company Number: US-PFIZER INC-2004059901

PATIENT
  Sex: Female
  Weight: 38.6 kg

DRUGS (15)
  1. NEURONTIN [Suspect]
     Indication: MOVEMENT DISORDER
     Route: 048
  2. NEURONTIN [Suspect]
     Indication: DEPRESSION
  3. NEURONTIN [Suspect]
     Indication: FATIGUE
  4. NEURONTIN [Suspect]
     Indication: ARTHRALGIA
  5. XANAX [Suspect]
     Route: 048
  6. LITHIUM CARBONATE [Suspect]
     Indication: BIPOLAR DISORDER
     Route: 048
  7. PROZAC [Suspect]
     Route: 048
  8. ATIVAN [Suspect]
     Indication: ANXIETY
     Route: 048
  9. ATIVAN [Suspect]
     Indication: AGITATION
     Route: 030
  10. AMBIEN [Suspect]
     Indication: INSOMNIA
     Route: 048
  11. TEQUIN [Concomitant]
     Route: 048
  12. RESTORIL [Concomitant]
     Route: 065
  13. VALIUM [Concomitant]
     Route: 065
  14. ZYPREXA [Concomitant]
     Route: 048
  15. PEPCID [Concomitant]
     Route: 042

REACTIONS (12)
  - ACUTE RESPIRATORY FAILURE [None]
  - ANXIETY [None]
  - COMPLETED SUICIDE [None]
  - FRACTURE [None]
  - HAEMOTHORAX [None]
  - INTENTIONAL OVERDOSE [None]
  - LACERATION [None]
  - MULTIPLE INJURIES [None]
  - PAIN [None]
  - RIB FRACTURE [None]
  - SUICIDAL IDEATION [None]
  - SUICIDE ATTEMPT [None]
